FAERS Safety Report 10255723 (Version 1)
Quarter: 2014Q2

REPORT INFORMATION
  Report Type: Spontaneous
  Country: US (occurrence: None)
  Receive Date: 20140620
  Receipt Date: 20140620
  Transmission Date: 20141212
  Serious: Yes (Other)
  Sender: FDA-Public Use
  Company Number: UNT-2014-002210

PATIENT
  Sex: Male

DRUGS (1)
  1. TYVASO [Suspect]
     Indication: PULMONARY ARTERIAL HYPERTENSION
     Route: 055
     Dates: start: 20120124

REACTIONS (2)
  - Hypoxia [None]
  - Pneumonia [None]
